FAERS Safety Report 5445864-8 (Version None)
Quarter: 2007Q3

REPORT INFORMATION
  Report Type: 
  Country: None (occurrence: None)
  Receive Date: 20070907
  Receipt Date: 20070828
  Transmission Date: 20080115
  Serious: Yes (Hospitalization)
  Sender: FDA-Public Use
  Company Number: PHEH2007US05550

PATIENT
  Age: 53 Year
  Sex: Male

DRUGS (3)
  1. CLOZARIL [Suspect]
     Indication: SCHIZOPHRENIA
     Dosage: 900 MG, QD
     Route: 048
     Dates: start: 19990201, end: 20021114
  2. RISPERDAL [Concomitant]
     Indication: SCHIZOPHRENIA
     Dosage: 2 MG, BID
     Route: 048
     Dates: start: 20020501, end: 20030101
  3. COGENTIN [Concomitant]
     Dosage: 2 BID
     Route: 048
     Dates: start: 19980501, end: 20021001

REACTIONS (5)
  - BLOOD CREATINE PHOSPHOKINASE INCREASED [None]
  - CONVULSION [None]
  - HYPOGLYCAEMIA [None]
  - MUSCULAR WEAKNESS [None]
  - RHABDOMYOLYSIS [None]
